FAERS Safety Report 9719893 (Version 1)
Quarter: 2013Q4

REPORT INFORMATION
  Report Type: Spontaneous
  Country: JP (occurrence: JP)
  Receive Date: 20131128
  Receipt Date: 20131128
  Transmission Date: 20140711
  Serious: Yes (Life-Threatening, Other)
  Sender: FDA-Public Use
  Company Number: JP-ASTRAZENECA-2013SE86950

PATIENT
  Age: 49 Year
  Sex: Female

DRUGS (3)
  1. SEROQUEL [Suspect]
     Indication: SUICIDE ATTEMPT
     Dosage: 84 TABLETS (2100 MG), DAILY
     Route: 048
     Dates: start: 20131115, end: 20131115
  2. ANTIDEPRESSANTS [Concomitant]
     Indication: SUICIDE ATTEMPT
     Dosage: 28 TABLETS
     Dates: start: 20131115
  3. ANTIEPILEPTICS [Concomitant]
     Indication: SUICIDE ATTEMPT
     Dosage: 42 TABLETS
     Dates: start: 20131115

REACTIONS (4)
  - Intentional overdose [Unknown]
  - Suicide attempt [Unknown]
  - Electrocardiogram abnormal [Unknown]
  - Somnolence [Unknown]
